FAERS Safety Report 4418005-3 (Version None)
Quarter: 2004Q3

REPORT INFORMATION
  Report Type: 
  Country: None (occurrence: None)
  Receive Date: 20040803
  Receipt Date: 20040721
  Transmission Date: 20050211
  Serious: Yes (Other)
  Sender: FDA-Public Use
  Company Number: A-CH2003-03849

PATIENT
  Age: 26 Year
  Sex: Female

DRUGS (2)
  1. TRACLEER [Suspect]
     Indication: DRUG INTERACTION
     Dosage: 125 MG, BID, ORAL
     Route: 048
     Dates: start: 20030725, end: 20030731
  2. ORTHO-NOVUM 1/35 [Suspect]
     Indication: DRUG INTERACTION
     Dosage: 35 UG/1 MG, SINGLE, ORAL
     Route: 048
     Dates: start: 20030725, end: 20030731

REACTIONS (3)
  - DRUG EXPOSURE DURING PREGNANCY [None]
  - NORMAL NEWBORN [None]
  - PREGNANCY ON ORAL CONTRACEPTIVE [None]
